FAERS Safety Report 4612748-4 (Version None)
Quarter: 2005Q1

REPORT INFORMATION
  Report Type: 
  Country: None (occurrence: None)
  Receive Date: 20050318
  Receipt Date: 20030407
  Transmission Date: 20050727
  Serious: Yes (Hospitalization, Disabling, Other)
  Sender: FDA-Public Use
  Company Number: US-MERCK-0304USA00822

PATIENT
  Age: 61 Year
  Sex: Female
  Weight: 84 kg

DRUGS (16)
  1. VIOXX [Suspect]
     Indication: BACK PAIN
     Route: 048
     Dates: end: 20000608
  2. HYDRODIURIL [Concomitant]
     Route: 065
     Dates: start: 19600101
  3. LASIX [Concomitant]
     Route: 065
     Dates: start: 19600101
  4. SYNTHROID [Concomitant]
     Route: 065
  5. INSULIN, BIPHASIC ISOPHANE [INJECTION] [Concomitant]
     Route: 065
  6. PEPCID [Concomitant]
     Route: 065
  7. DYRENIUM [Concomitant]
     Route: 065
     Dates: end: 20000608
  8. POTASSIUM (UNSPECIFIED) [Concomitant]
     Route: 065
  9. AMITRIPTYLINE HYDROCHLORIDE [Concomitant]
     Route: 065
  10. ZAROXOLYN [Concomitant]
     Route: 065
  11. DARVOCET-N 100 [Concomitant]
     Route: 065
  12. ASPIRIN [Concomitant]
     Route: 065
  13. NIACIN [Concomitant]
     Route: 065
  14. VITAMINS (UNSPECIFIED) [Concomitant]
     Route: 065
  15. ALUPENT [Concomitant]
     Route: 065
  16. ATENOLOL [Concomitant]
     Route: 065

REACTIONS (51)
  - ACUTE CORONARY SYNDROME [None]
  - ACUTE MYOCARDIAL INFARCTION [None]
  - ADRENAL MASS [None]
  - ANGINA UNSTABLE [None]
  - ASTHENIA [None]
  - BACTERIURIA [None]
  - BRONCHITIS ACUTE [None]
  - CARDIAC FAILURE CONGESTIVE [None]
  - CATARACT [None]
  - CONJUNCTIVITIS [None]
  - CORONARY ARTERY DISEASE [None]
  - CYSTITIS [None]
  - DEPRESSION [None]
  - DERMATITIS [None]
  - DIABETIC NEPHROPATHY [None]
  - DIABETIC NEUROPATHY [None]
  - DIABETIC RETINAL OEDEMA [None]
  - DIABETIC RETINOPATHY [None]
  - ESCHERICHIA URINARY TRACT INFECTION [None]
  - FALL [None]
  - FATIGUE [None]
  - GASTROOESOPHAGEAL REFLUX DISEASE [None]
  - HEADACHE [None]
  - HEARING IMPAIRED [None]
  - HYPERTENSION [None]
  - HYPOGLYCAEMIA [None]
  - LACUNAR INFARCTION [None]
  - LIPIDS INCREASED [None]
  - LUNG NEOPLASM [None]
  - MACULOPATHY [None]
  - MASS [None]
  - METABOLIC ALKALOSIS [None]
  - NOCTURIA [None]
  - PLEURAL EFFUSION [None]
  - PROTEINURIA [None]
  - PULMONARY HYPERTENSION [None]
  - RADIUS FRACTURE [None]
  - RECTAL HAEMORRHAGE [None]
  - RENAL CYST [None]
  - RENAL FAILURE CHRONIC [None]
  - ROAD TRAFFIC ACCIDENT [None]
  - SCOLIOSIS [None]
  - SEASONAL ALLERGY [None]
  - SINUSITIS [None]
  - SKIN LESION [None]
  - SPINAL COLUMN STENOSIS [None]
  - STASIS DERMATITIS [None]
  - VAGINAL INFECTION [None]
  - VENTRICULAR HYPERTROPHY [None]
  - WEIGHT INCREASED [None]
  - WRIST FRACTURE [None]
